FAERS Safety Report 9092721 (Version 1)
Quarter: 2013Q1

REPORT INFORMATION
  Report Type: Spontaneous
  Country: US (occurrence: None)
  Receive Date: 20130213
  Receipt Date: 20130213
  Transmission Date: 20140127
  Serious: Yes (Other)
  Sender: FDA-Public Use
  Company Number: None

PATIENT
  Age: 30 Year
  Sex: Female
  Weight: 97.07 kg

DRUGS (2)
  1. BROMOCRIPTINE 5MG MYLAN [Suspect]
     Indication: HYPERPROLACTINAEMIA
     Dates: start: 20130210, end: 20130210
  2. FLUOXETINE [Suspect]
     Indication: DEPRESSION

REACTIONS (2)
  - Hypotension [None]
  - Dystonia [None]
